FAERS Safety Report 4349962-1 (Version None)
Quarter: 2004Q2

REPORT INFORMATION
  Report Type: 
  Country: None (occurrence: None)
  Receive Date: 20040426
  Receipt Date: 20040415
  Transmission Date: 20050107
  Serious: Yes (Other)
  Sender: FDA-Public Use
  Company Number: US-SHR-04-020252

PATIENT
  Age: 46 Year
  Sex: Female
  Weight: 99.8 kg

DRUGS (6)
  1. BETASERON [Suspect]
     Indication: MULTIPLE SCLEROSIS
     Dosage: 8 MIU, EVERY 2D, SUBCUTANEOUS
     Route: 058
     Dates: start: 20010101, end: 20031224
  2. AMANTADINE HCL [Concomitant]
  3. PROVIGIL [Concomitant]
  4. COZAAR [Concomitant]
  5. ZANTAC [Concomitant]
  6. REGLAN [Concomitant]

REACTIONS (1)
  - PYODERMA GANGRENOSUM [None]
